FAERS Safety Report 7618743-5 (Version None)
Quarter: 2011Q3

REPORT INFORMATION
  Report Type: 
  Country: None (occurrence: None)
  Receive Date: 20110718
  Receipt Date: 20110705
  Transmission Date: 20111222
  Serious: Yes (Other)
  Sender: FDA-Public Use
  Company Number: US-CELGENEUS-163-50794-11070695

PATIENT

DRUGS (5)
  1. GEMTUZUMAB OZOGAMICIN [Suspect]
     Dosage: 3 MILLIGRAM/SQ. METER
     Route: 065
  2. VIDAZA [Suspect]
     Dosage: 75 MILLIGRAM/SQ. METER
     Route: 058
  3. GEMTUZUMAB OZOGAMICIN [Suspect]
     Dosage: 6 MILLIGRAM/SQ. METER
     Route: 065
  4. GEMTUZUMAB OZOGAMICIN [Suspect]
     Dosage: 6 MILLIGRAM/SQ. METER
     Route: 065
  5. GEMTUZUMAB OZOGAMICIN [Suspect]
     Dosage: 6 MILLIGRAM/SQ. METER
     Route: 065

REACTIONS (11)
  - WHEEZING [None]
  - FEBRILE NEUTROPENIA [None]
  - HYPOALBUMINAEMIA [None]
  - MUCOSAL INFLAMMATION [None]
  - PANCYTOPENIA [None]
  - COUGH [None]
  - RETINOPATHY [None]
  - THROMBOCYTOPENIA [None]
  - INFECTION [None]
  - DYSPNOEA [None]
  - LIVER FUNCTION TEST ABNORMAL [None]
